FAERS Safety Report 21756121 (Version 1)
Quarter: 2022Q4

REPORT INFORMATION
  Report Type: Spontaneous
  Country: FR (occurrence: FR)
  Receive Date: 20221220
  Receipt Date: 20221220
  Transmission Date: 20230113
  Serious: Yes (Other)
  Sender: FDA-Public Use
  Company Number: FR-009507513-2212FRA007073

PATIENT
  Age: 76 Year
  Sex: Female

DRUGS (1)
  1. PEMBROLIZUMAB [Suspect]
     Active Substance: PEMBROLIZUMAB
     Indication: Uveal melanoma
     Dosage: UNK

REACTIONS (3)
  - Immune-mediated uveitis [Recovered/Resolved]
  - Vitritis [Recovered/Resolved]
  - Immune-mediated enterocolitis [Unknown]
